FAERS Safety Report 8942004 (Version 1)
Quarter: 2012Q4

REPORT INFORMATION
  Report Type: 
  Country: FR (occurrence: FR)
  Receive Date: 20121130
  Receipt Date: 20121130
  Transmission Date: 20130627
  Serious: Yes (Life-Threatening, Hospitalization)
  Sender: FDA-Public Use
  Company Number: FR-BAYER-2012-122831

PATIENT
  Age: 75 Year
  Sex: Male

DRUGS (4)
  1. NEXAVAR [Suspect]
     Dosage: UNK
     Route: 048
     Dates: start: 201201, end: 20120601
  2. CONTRAMAL [Concomitant]
  3. PARACETAMOL [Concomitant]
  4. SPASFON [Concomitant]

REACTIONS (4)
  - Lung disorder [Recovered/Resolved]
  - Purpura [Recovered/Resolved]
  - Bacterial infection [Recovered/Resolved]
  - Thrombocytopenia [Recovered/Resolved]
